FAERS Safety Report 23977912 (Version 7)
Quarter: 2024Q4

REPORT INFORMATION
  Report Type: Spontaneous
  Country: CA (occurrence: CA)
  Receive Date: 20240614
  Receipt Date: 20241115
  Transmission Date: 20250114
  Serious: Yes (Hospitalization, Other)
  Sender: PFIZER
  Company Number: CA-PFIZER INC-202400077740

PATIENT
  Age: 63 Year
  Sex: Female
  Weight: 87.3 kg

DRUGS (17)
  1. RUXIENCE [Suspect]
     Active Substance: RITUXIMAB-PVVR
     Indication: Rheumatoid arthritis
     Dosage: 1000 MG, DAY 1 AND DAY 15
     Route: 042
     Dates: start: 20230823, end: 20230823
  2. RUXIENCE [Suspect]
     Active Substance: RITUXIMAB-PVVR
     Dosage: 1000 MG, DAY 1 AND DAY 15
     Route: 042
     Dates: start: 20230907, end: 20230907
  3. RUXIENCE [Suspect]
     Active Substance: RITUXIMAB-PVVR
     Dosage: 1000 MG, DAY 1 AND DAY 15
     Route: 042
     Dates: start: 20240508
  4. RUXIENCE [Suspect]
     Active Substance: RITUXIMAB-PVVR
     Dosage: 26 WEEKS 5 DAYS
     Route: 042
     Dates: start: 20241111
  5. AMITRIPTYLINE [Concomitant]
     Active Substance: AMITRIPTYLINE
     Dosage: 25 MG, (1-2 TABS) @HS
     Route: 065
  6. ATORVASTATIN [Concomitant]
     Active Substance: ATORVASTATIN
     Dosage: 10 MG, 1X/DAY PER DAY
     Route: 065
     Dates: start: 2023
  7. DULOXETINE [Concomitant]
     Active Substance: DULOXETINE
     Dosage: 60 MG, 1X/DAY PER DAY
     Route: 065
  8. OMEPRAZOLE [Concomitant]
     Active Substance: OMEPRAZOLE
     Dosage: 20 MG
  9. HYDROXYCHLOROQUINE SULFATE [Concomitant]
     Active Substance: HYDROXYCHLOROQUINE SULFATE
     Dosage: 400 MG, 1X/DAY PER DAY
     Route: 065
  10. PREGABALIN [Concomitant]
     Active Substance: PREGABALIN
     Dosage: 150 MG, 1X/DAY, PER DAY
     Route: 065
  11. PREDNISONE [Concomitant]
     Active Substance: PREDNISONE
     Dosage: 30 MG, 1X/DAY, PER DAY
     Route: 065
  12. RISEDRONATE SODIUM [Concomitant]
     Active Substance: RISEDRONATE SODIUM
     Dosage: 35 MG, 1X/DAY, PER DAY
     Route: 065
  13. SOLIFENACIN [Concomitant]
     Active Substance: SOLIFENACIN
     Dosage: 5 MG
  14. SULFADIAZINE\TRIMETHOPRIM [Concomitant]
     Active Substance: SULFADIAZINE\TRIMETHOPRIM
     Dosage: 1 DF, 1X/DAY, 400/80 MG OD
     Route: 065
  15. SULFASALAZINE [Concomitant]
     Active Substance: SULFASALAZINE
     Indication: Rheumatoid arthritis
     Dosage: 1000 MG, 1X/DAY, PER DAY
     Route: 065
  16. SYNTHROID [Concomitant]
     Active Substance: LEVOTHYROXINE SODIUM
     Dosage: 0.125 MG (1 DF)
  17. SYNTHROID [Concomitant]
     Active Substance: LEVOTHYROXINE SODIUM
     Dosage: 0.125 UG (1 DF)

REACTIONS (7)
  - Kidney infection [Recovering/Resolving]
  - Lower respiratory tract infection [Recovering/Resolving]
  - Ureteric obstruction [Unknown]
  - Urinary tract infection [Unknown]
  - Bladder disorder [Unknown]
  - Productive cough [Recovering/Resolving]
  - Pain [Unknown]

NARRATIVE: CASE EVENT DATE: 20240101
